FAERS Safety Report 8163139-3 (Version None)
Quarter: 2012Q1

REPORT INFORMATION
  Report Type: 
  Country: None (occurrence: None)
  Receive Date: 20120224
  Receipt Date: 20110323
  Transmission Date: 20120608
  Serious: No
  Sender: FDA-Public Use
  Company Number: US-PFIZER INC-K201100325

PATIENT
  Age: 31 Year
  Sex: Female
  Weight: 61.224 kg

DRUGS (1)
  1. FLECTOR [Suspect]
     Indication: INFLAMMATION
     Dosage: 1 PATCH, Q12H
     Route: 061
     Dates: start: 20110304, end: 20110301

REACTIONS (1)
  - HYPERSENSITIVITY [None]
